FAERS Safety Report 10591378 (Version 3)
Quarter: 2018Q2

REPORT INFORMATION
  Report Type: Spontaneous
  Country: JP (occurrence: JP)
  Receive Date: 20141118
  Receipt Date: 20180521
  Transmission Date: 20180711
  Serious: Yes (Other)
  Sender: FDA-Public Use
  Company Number: PHHY2014JP105715

PATIENT
  Age: 50 Year
  Sex: Male
  Weight: 58 kg

DRUGS (15)
  1. PURSENNIDE//SENNOSIDE A+B [Concomitant]
     Indication: PRODUCT USED FOR UNKNOWN INDICATION
     Dosage: UNK
     Route: 065
     Dates: start: 201403
  2. BENZALIN [Concomitant]
     Active Substance: NITRAZEPAM
     Indication: SCHIZOPHRENIA
     Dosage: 20 MG, QD
     Route: 048
     Dates: start: 201403
  3. LAXOBERON [Concomitant]
     Active Substance: SODIUM PICOSULFATE
     Indication: PRODUCT USED FOR UNKNOWN INDICATION
     Dosage: UNK
     Route: 065
     Dates: start: 201403
  4. CLOZARIL [Suspect]
     Active Substance: CLOZAPINE
     Dosage: 25 MG, QD
     Route: 048
     Dates: start: 20140731, end: 20140802
  5. DEPAKENE [Concomitant]
     Active Substance: VALPROIC ACID
     Indication: SCHIZOPHRENIA
     Dosage: 500 MG, BID
     Route: 048
     Dates: start: 201403
  6. SEROQUEL [Concomitant]
     Active Substance: QUETIAPINE FUMARATE
     Dosage: 200 MG, QD
     Route: 048
     Dates: start: 20140813
  7. CLOZARIL [Suspect]
     Active Substance: CLOZAPINE
     Indication: SCHIZOPHRENIA
     Dosage: 12.5 MG, QD
     Route: 048
     Dates: start: 20140730, end: 20140730
  8. SILECE [Concomitant]
     Active Substance: FLUNITRAZEPAM
     Indication: SCHIZOPHRENIA
     Dosage: 4 MG, QD
     Route: 048
     Dates: start: 201403, end: 20140805
  9. MAGMITT [Concomitant]
     Active Substance: MAGNESIUM OXIDE
     Indication: PRODUCT USED FOR UNKNOWN INDICATION
     Dosage: UNK
     Route: 065
     Dates: start: 201403
  10. CLOZARIL [Suspect]
     Active Substance: CLOZAPINE
     Dosage: 25 MG, 50 MG, UNK
     Route: 048
     Dates: start: 20140813, end: 20140815
  11. RISPERDAL [Concomitant]
     Active Substance: RISPERIDONE
     Indication: PRODUCT USED FOR UNKNOWN INDICATION
     Dosage: 6 MG, UNK
     Route: 065
     Dates: start: 201403, end: 20140730
  12. CLOZARIL [Suspect]
     Active Substance: CLOZAPINE
     Dosage: 25 MG, BID
     Route: 048
     Dates: start: 20140803, end: 20140812
  13. SEROQUEL [Concomitant]
     Active Substance: QUETIAPINE FUMARATE
     Indication: SCHIZOPHRENIA
     Dosage: 600 MG, UNK
     Route: 048
     Dates: end: 20140729
  14. SEROQUEL [Concomitant]
     Active Substance: QUETIAPINE FUMARATE
     Dosage: 200 MG, BID
     Route: 048
     Dates: start: 20140730, end: 20140812
  15. SILECE [Concomitant]
     Active Substance: FLUNITRAZEPAM
     Dosage: 2 MG, QD
     Route: 048
     Dates: start: 20140806, end: 20140826

REACTIONS (21)
  - Bronchitis [Recovered/Resolved]
  - Blood potassium increased [Unknown]
  - Red blood cell count increased [Unknown]
  - Haemoglobin decreased [Unknown]
  - Productive cough [Unknown]
  - Lymphocyte count decreased [Unknown]
  - Malaise [Unknown]
  - Aspartate aminotransferase increased [Unknown]
  - Heart rate increased [Recovered/Resolved]
  - Upper respiratory tract inflammation [Unknown]
  - Troponin T increased [Recovered/Resolved]
  - Pneumonia [Recovered/Resolved]
  - Haematocrit decreased [Unknown]
  - Left ventricular dysfunction [Unknown]
  - Blood lactate dehydrogenase increased [Unknown]
  - Cardiomyopathy [Recovered/Resolved]
  - Hyperthermia [Recovered/Resolved]
  - Decreased appetite [Unknown]
  - Blood creatine phosphokinase increased [Recovered/Resolved]
  - Pyrexia [Recovered/Resolved]
  - Eosinophil count increased [Unknown]

NARRATIVE: CASE EVENT DATE: 20140809
